FAERS Safety Report 8457214-3 (Version None)
Quarter: 2012Q2

REPORT INFORMATION
  Report Type: 
  Country: None (occurrence: None)
  Receive Date: 20120621
  Receipt Date: 20120612
  Transmission Date: 20120825
  Serious: Yes (Hospitalization)
  Sender: FDA-Public Use
  Company Number: US-MPIJNJ-2012-04188

PATIENT
  Age: 72 Year
  Sex: Female
  Weight: 58.957 kg

DRUGS (1)
  1. VELCADE [Suspect]
     Indication: MULTIPLE MYELOMA
     Dosage: 2.16 MG, 1/WEEK
     Route: 042
     Dates: start: 20120123, end: 20120202

REACTIONS (8)
  - DEHYDRATION [None]
  - URINARY TRACT INFECTION [None]
  - FATIGUE [None]
  - SYSTEMIC INFLAMMATORY RESPONSE SYNDROME [None]
  - NAUSEA [None]
  - VOMITING [None]
  - HYPOTENSION [None]
  - LOBAR PNEUMONIA [None]
